FAERS Safety Report 4911178-5 (Version None)
Quarter: 2006Q1

REPORT INFORMATION
  Report Type: 
  Country: None (occurrence: None)
  Receive Date: 20060209
  Receipt Date: 20060203
  Transmission Date: 20060701
  Serious: Yes (Other)
  Sender: FDA-Public Use
  Company Number: A600153310/WAES0601USA03237

PATIENT
  Age: 74 Year
  Sex: Male

DRUGS (4)
  1. MYOCHRYSINE [Suspect]
     Indication: RHEUMATOID ARTHRITIS
     Dosage: 50 MG; MONTHLY, IM
     Route: 030
     Dates: start: 19820101
  2. CELEBREX [Concomitant]
  3. ZOCOR [Concomitant]
  4. PERINDOPRIL [Concomitant]

REACTIONS (9)
  - CHEST PAIN [None]
  - DRUG INTERACTION [None]
  - HEART RATE DECREASED [None]
  - HYPOTENSION [None]
  - LOSS OF CONSCIOUSNESS [None]
  - MALAISE [None]
  - NITRITOID CRISIS [None]
  - NO REACTION ON PREVIOUS EXPOSURE TO DRUG [None]
  - SYNCOPE VASOVAGAL [None]
